FAERS Safety Report 10211061 (Version 1)
Quarter: 2014Q2

REPORT INFORMATION
  Report Type: Spontaneous
  Country: US (occurrence: None)
  Receive Date: 20140528
  Receipt Date: 20140528
  Transmission Date: 20141212
  Serious: Yes (Hospitalization)
  Sender: FDA-Public Use
  Company Number: UNT-2014-000771

PATIENT
  Age: 58 Year
  Sex: Female

DRUGS (2)
  1. TYVASO (TREPROSTINIL SODIUM) INHALATION GAS, 0.6MG/ML [Suspect]
     Indication: PULMONARY ARTERIAL HYPERTENSION
     Route: 055
     Dates: start: 20140228
  2. RIOCIGUAT (RIOCIGUAT) [Concomitant]

REACTIONS (1)
  - Bacterial infection [None]
